FAERS Safety Report 17966454 (Version 1)
Quarter: 2020Q2

REPORT INFORMATION
  Report Type: Report from Study
  Country: MX (occurrence: MX)
  Receive Date: 20200630
  Receipt Date: 20200630
  Transmission Date: 20200714
  Serious: Yes (Death, Other)
  Sender: FDA-Public Use
  Company Number: NVSC2020MX173657

PATIENT
  Age: 54 Year
  Sex: Male
  Weight: 68 kg

DRUGS (2)
  1. IMATINIB. [Suspect]
     Active Substance: IMATINIB MESYLATE
     Indication: CHRONIC MYELOID LEUKAEMIA
     Dosage: 400 MG, Q24H
     Route: 048
     Dates: start: 201606, end: 201710
  2. DASATINIB. [Concomitant]
     Active Substance: DASATINIB
     Indication: CHRONIC MYELOID LEUKAEMIA
     Dosage: 100 MG, Q24H (FOR 22 MONTHS)
     Route: 048
     Dates: start: 201710, end: 202001

REACTIONS (5)
  - Pleural effusion [Recovered/Resolved]
  - General physical health deterioration [Fatal]
  - Fatigue [Fatal]
  - Headache [Fatal]
  - Body temperature increased [Fatal]

NARRATIVE: CASE EVENT DATE: 202001
